FAERS Safety Report 4323216-1 (Version None)
Quarter: 2004Q1

REPORT INFORMATION
  Report Type: 
  Country: None (occurrence: None)
  Receive Date: 20040322
  Receipt Date: 20040311
  Transmission Date: 20041129
  Serious: Yes (Life-Threatening, Hospitalization)
  Sender: FDA-Public Use
  Company Number: US-JNJFOC-20040303090

PATIENT
  Age: 17 Year
  Sex: Female

DRUGS (1)
  1. LEVAQUIN [Suspect]
     Indication: URINARY TRACT INFECTION
     Dosage: 500 MG, ORAL
     Route: 048
     Dates: start: 20040229, end: 20040304

REACTIONS (11)
  - ABDOMINAL DISTENSION [None]
  - ABDOMINAL PAIN [None]
  - ABDOMINAL TENDERNESS [None]
  - ACUTE RESPIRATORY DISTRESS SYNDROME [None]
  - CHILLS [None]
  - DISSEMINATED INTRAVASCULAR COAGULATION [None]
  - HEPATIC FAILURE [None]
  - MULTI-ORGAN FAILURE [None]
  - NAUSEA [None]
  - PYREXIA [None]
  - VOMITING [None]
